FAERS Safety Report 6674058-3 (Version None)
Quarter: 2010Q1

REPORT INFORMATION
  Report Type: 
  Country: None (occurrence: None)
  Receive Date: 20100329
  Receipt Date: 20091102
  Transmission Date: 20100710
  Serious: Yes (Other)
  Sender: FDA-Public Use
  Company Number: 2009294898

PATIENT
  Age: 14 Year
  Sex: Male

DRUGS (2)
  1. GEODON [Suspect]
     Indication: AGGRESSION
     Dosage: UNIT DOSE
     Dates: end: 20090301
  2. HALOPERIDOL [Concomitant]

REACTIONS (6)
  - AKATHISIA [None]
  - MUSCLE RIGIDITY [None]
  - MUSCLE SPASMS [None]
  - PARKINSONISM [None]
  - RABBIT SYNDROME [None]
  - TARDIVE DYSKINESIA [None]
